FAERS Safety Report 25955479 (Version 1)
Quarter: 2025Q4

REPORT INFORMATION
  Report Type: Spontaneous
  Country: CN (occurrence: CN)
  Receive Date: 20251024
  Receipt Date: 20251024
  Transmission Date: 20260117
  Serious: Yes (Hospitalization)
  Sender: HISUN PHARMACEUTICALS USA INC
  Company Number: CN-Hisun Pharmaceuticals USA Inc.-000790

PATIENT
  Age: 28 Year
  Sex: Female
  Weight: 52 kg

DRUGS (3)
  1. DACTINOMYCIN [Suspect]
     Active Substance: DACTINOMYCIN
     Indication: Gestational trophoblastic tumour
     Route: 042
     Dates: start: 20251001, end: 20251001
  2. DEXTROSE [Concomitant]
     Active Substance: DEXTROSE MONOHYDRATE
     Indication: Vehicle solution use
     Route: 042
     Dates: start: 20251001, end: 20251001
  3. DACTINOMYCIN [Suspect]
     Active Substance: DACTINOMYCIN
     Indication: Malignant hydatidiform mole
     Route: 042
     Dates: start: 20251001, end: 20251001

REACTIONS (7)
  - Hypersensitivity [Recovering/Resolving]
  - Dizziness [Recovering/Resolving]
  - Asthenia [Recovering/Resolving]
  - Chest discomfort [Recovering/Resolving]
  - Dyspnoea [Recovering/Resolving]
  - Pain [Recovering/Resolving]
  - Product use in unapproved indication [Unknown]

NARRATIVE: CASE EVENT DATE: 20251001
